FAERS Safety Report 13761076 (Version 5)
Quarter: 2018Q3

REPORT INFORMATION
  Report Type: Report from Study
  Country: BR (occurrence: BR)
  Receive Date: 20170717
  Receipt Date: 20180711
  Transmission Date: 20181010
  Serious: Yes (Other)
  Sender: FDA-Public Use
  Company Number: PHHY2017BR092276

PATIENT
  Age: 57 Year
  Sex: Female
  Weight: 88 kg

DRUGS (7)
  1. COSENTYX [Suspect]
     Active Substance: SECUKINUMAB
     Indication: PSORIATIC ARTHROPATHY
     Dosage: 300 MG (150 MG TWO PENS), QMO
     Route: 058
     Dates: start: 20170425
  2. COSENTYX [Suspect]
     Active Substance: SECUKINUMAB
     Dosage: 300 MG (150 MG TWO PENS), QMO
     Route: 058
     Dates: start: 20180306
  3. COSENTYX [Suspect]
     Active Substance: SECUKINUMAB
     Dosage: 300 MG (150 MG TWO PENS), QMO
     Route: 058
     Dates: start: 20170523
  4. FLUOXETIN [Concomitant]
     Active Substance: FLUOXETINE HYDROCHLORIDE
     Indication: ANXIETY
     Dosage: 2 DF, QD
     Route: 048
  5. COSENTYX [Suspect]
     Active Substance: SECUKINUMAB
     Dosage: 300 MG (150 MG TWO PENS), QMO
     Route: 058
     Dates: start: 20180127
  6. ARAVA [Concomitant]
     Active Substance: LEFLUNOMIDE
     Indication: PSORIATIC ARTHROPATHY
     Dosage: 20 MG, QD
     Route: 048
  7. ARAVA [Concomitant]
     Active Substance: LEFLUNOMIDE
     Indication: RHEUMATOID ARTHRITIS

REACTIONS (8)
  - Oropharyngeal pain [Unknown]
  - Arthropod bite [Recovered/Resolved]
  - Hypersensitivity [Unknown]
  - Concomitant disease aggravated [Recovered/Resolved]
  - Erysipelas [Recovered/Resolved]
  - Skin ulcer [Recovered/Resolved]
  - Pneumonia influenzal [Unknown]
  - Sinusitis [Recovered/Resolved]

NARRATIVE: CASE EVENT DATE: 201712
